FAERS Safety Report 10771936 (Version 2)
Quarter: 2015Q1

REPORT INFORMATION
  Report Type: Spontaneous
  Country: AU (occurrence: AU)
  Receive Date: 20150206
  Receipt Date: 20150209
  Transmission Date: 20150721
  Serious: Yes (Death, Hospitalization)
  Sender: FDA-Public Use
  Company Number: AU-ABBVIE-14P-008-1294565-00

PATIENT
  Age: 82 Year
  Sex: Male

DRUGS (4)
  1. ROTIGITINE PATCH [Concomitant]
     Indication: PRODUCT USED FOR UNKNOWN INDICATION
  2. DUODOPA [Suspect]
     Active Substance: CARBIDOPA\LEVODOPA
     Indication: PRODUCT USED FOR UNKNOWN INDICATION
     Dosage: 6.1ML PER HOUR
     Route: 065
     Dates: start: 201411
  3. ANTIBIOTICS [Concomitant]
     Active Substance: UNSPECIFIED INGREDIENT
     Indication: PRODUCT USED FOR UNKNOWN INDICATION
     Route: 042
     Dates: start: 201410
  4. DUODOPA [Suspect]
     Active Substance: CARBIDOPA\LEVODOPA
     Dosage: 5.7 ML/HR
     Route: 065
     Dates: start: 201411

REACTIONS (18)
  - Respiratory distress [Unknown]
  - Renal impairment [Unknown]
  - Respiratory distress [Recovered/Resolved]
  - Urinary tract infection [Unknown]
  - Procedural complication [Unknown]
  - Myocardial necrosis marker increased [Unknown]
  - Coma scale abnormal [Unknown]
  - Feeding tube complication [Unknown]
  - Pneumonia aspiration [Unknown]
  - Pyrexia [Unknown]
  - Secretion discharge [Unknown]
  - Bronchial secretion retention [Unknown]
  - Respiratory distress [Unknown]
  - Acute myocardial infarction [Unknown]
  - Pneumonia aspiration [Unknown]
  - Dyskinesia [Unknown]
  - Death [Fatal]
  - Haemoglobin abnormal [Unknown]

NARRATIVE: CASE EVENT DATE: 201411
